FAERS Safety Report 6614376-8 (Version None)
Quarter: 2010Q1

REPORT INFORMATION
  Report Type: 
  Country: None (occurrence: None)
  Receive Date: 20100303
  Receipt Date: 20100303
  Transmission Date: 20100710
  Serious: Yes (Other)
  Sender: FDA-Public Use
  Company Number: None

PATIENT
  Age: 66 Year
  Sex: Male
  Weight: 86.1834 kg

DRUGS (1)
  1. AVODART [Suspect]
     Indication: BENIGN PROSTATIC HYPERPLASIA
     Dosage: .5MG 1 A DAY
     Dates: start: 20090615, end: 20100128

REACTIONS (14)
  - ANAL PRURITUS [None]
  - ANORECTAL DISCOMFORT [None]
  - BURNING SENSATION [None]
  - COLECTOMY [None]
  - EJACULATION FAILURE [None]
  - GASTROINTESTINAL PAIN [None]
  - IMPAIRED HEALING [None]
  - LOSS OF LIBIDO [None]
  - NO THERAPEUTIC RESPONSE [None]
  - PROCTALGIA [None]
  - PRURITUS [None]
  - RASH [None]
  - SKIN LACERATION [None]
  - SWELLING [None]
